FAERS Safety Report 16274624 (Version 1)
Quarter: 2019Q2

REPORT INFORMATION
  Report Type: Report from Study
  Country: AU (occurrence: AU)
  Receive Date: 20190506
  Receipt Date: 20190506
  Transmission Date: 20190711
  Serious: Yes (Hospitalization, Other)
  Sender: FDA-Public Use
  Company Number: AU-TOLMAR, INC.-2019AU004433

PATIENT

DRUGS (1)
  1. ELIGARD [Suspect]
     Active Substance: LEUPROLIDE ACETATE
     Indication: PROSTATE CANCER
     Dosage: 45 MG,  6 MONTHLY
     Route: 058
     Dates: start: 2015

REACTIONS (3)
  - Fall [Unknown]
  - Dementia [Unknown]
  - Head injury [Unknown]

NARRATIVE: CASE EVENT DATE: 201904
